FAERS Safety Report 8430493-4 (Version None)
Quarter: 2012Q2

REPORT INFORMATION
  Report Type: 
  Country: None (occurrence: None)
  Receive Date: 20120612
  Receipt Date: 20120611
  Transmission Date: 20120825
  Serious: No
  Sender: FDA-Public Use
  Company Number: US-TEVA-336533USA

PATIENT
  Sex: Female
  Weight: 54.48 kg

DRUGS (8)
  1. AZILECT [Suspect]
     Indication: PARKINSON'S DISEASE
     Route: 048
  2. EZETIMIBE [Concomitant]
     Indication: HYPERCHOLESTEROLAEMIA
     Route: 048
  3. ZOLPIDEM [Concomitant]
     Indication: INSOMNIA
     Route: 048
  4. VERAPAMIL [Concomitant]
     Indication: CARDIAC DISORDER
     Route: 048
  5. CARBIDOPA [Concomitant]
     Indication: PARKINSON'S DISEASE
     Route: 048
  6. METOPROLOL [Concomitant]
     Indication: CARDIAC DISORDER
     Route: 048
  7. SINEMET [Concomitant]
     Indication: PARKINSON'S DISEASE
     Route: 048
  8. ACETYLSALICYLIC ACID SRT [Concomitant]
     Indication: THROMBOSIS PROPHYLAXIS
     Route: 048

REACTIONS (1)
  - TOOTHACHE [None]
